FAERS Safety Report 5685160-7 (Version None)
Quarter: 2008Q1

REPORT INFORMATION
  Report Type: 
  Country: None (occurrence: None)
  Receive Date: 20080328
  Receipt Date: 20080318
  Transmission Date: 20080703
  Serious: Yes (Death, Other)
  Sender: FDA-Public Use
  Company Number: IE-PFIZER INC-2007025948

PATIENT
  Sex: Female

DRUGS (6)
  1. CHAMPIX [Suspect]
     Indication: SMOKING CESSATION THERAPY
     Route: 048
  2. ACETAMINOPHEN W/ CODEINE [Concomitant]
  3. ALL OTHER THERAPEUTIC PRODUCTS [Concomitant]
  4. SERETIDE [Concomitant]
     Route: 055
  5. VENTOLIN [Concomitant]
     Route: 055
  6. SPIRIVA [Concomitant]
     Route: 055

REACTIONS (28)
  - ABDOMINAL PAIN [None]
  - ADRENAL DISORDER [None]
  - AORTIC ARTERIOSCLEROSIS [None]
  - ARRHYTHMIA [None]
  - ARTERIOSCLEROSIS CORONARY ARTERY [None]
  - BRAIN OEDEMA [None]
  - CARDIAC HYPERTROPHY [None]
  - CELL DEATH [None]
  - CONTUSION [None]
  - FALL [None]
  - GASTRITIS EROSIVE [None]
  - HEPATIC CONGESTION [None]
  - HEPATIC FIBROSIS [None]
  - HYPERTENSION [None]
  - HYPERTENSIVE HEART DISEASE [None]
  - INTESTINAL CONGESTION [None]
  - INTRA-ABDOMINAL HAEMORRHAGE [None]
  - KIDNEY ENLARGEMENT [None]
  - MYOCARDIAL FIBROSIS [None]
  - MYOCARDIAL INFARCTION [None]
  - NAUSEA [None]
  - PLEURAL ADHESION [None]
  - PULMONARY CONGESTION [None]
  - PULMONARY EMBOLISM [None]
  - PULMONARY OEDEMA [None]
  - RENAL DISORDER [None]
  - SYNCOPE [None]
  - WOUND [None]
